FAERS Safety Report 9224938 (Version 2)
Quarter: 2013Q2

REPORT INFORMATION
  Report Type: Report from Study
  Country: US (occurrence: US)
  Receive Date: 20130411
  Receipt Date: 20130419
  Transmission Date: 20140414
  Serious: Yes (Hospitalization, Disabling)
  Sender: FDA-Public Use
  Company Number: US-SANOFI-AVENTIS-2013SA036705

PATIENT
  Age: 71 Year
  Sex: Male

DRUGS (19)
  1. DOCETAXEL [Suspect]
     Indication: NON-SMALL CELL LUNG CANCER STAGE IV
     Dates: start: 20120808, end: 20121018
  2. BLINDED THERAPY [Suspect]
     Indication: NON-SMALL CELL LUNG CANCER STAGE IV
     Dates: start: 20120808, end: 20121018
  3. OXYCODONE [Concomitant]
     Indication: PAIN
     Dates: start: 20121115
  4. OXYCONTIN [Concomitant]
     Dates: start: 20121129, end: 20121227
  5. ARICEPT [Concomitant]
     Dates: start: 2010
  6. NAMENDA [Concomitant]
     Dates: start: 2010
  7. HUMALOG [Concomitant]
     Indication: DIABETES MELLITUS
     Dates: start: 201107
  8. GLUCAGON [Concomitant]
     Indication: DIABETES MELLITUS
     Dates: start: 201107
  9. GLIPIZIDE [Concomitant]
     Indication: DIABETES MELLITUS
     Dates: start: 201107
  10. ZOLOFT [Concomitant]
     Indication: DEPRESSION
     Dates: start: 201107
  11. DILANTIN [Concomitant]
     Indication: CONVULSION
     Dates: start: 2010
  12. KEPPRA [Concomitant]
     Indication: CONVULSION
     Dates: start: 2010
  13. MICARDIS [Concomitant]
     Indication: HYPERTENSION
     Dates: start: 2010
  14. NORVASC [Concomitant]
     Indication: HYPERTENSION
     Dates: start: 2010
  15. VERAPAMIL [Concomitant]
     Indication: HYPERTENSION
     Dates: start: 2010
  16. ZOCOR [Concomitant]
     Indication: HYPERCHOLESTEROLAEMIA
     Dates: start: 2010
  17. NEXIUM [Concomitant]
     Indication: GASTROOESOPHAGEAL REFLUX DISEASE
     Dates: start: 201108
  18. TERAZOSIN [Concomitant]
     Indication: BENIGN PROSTATIC HYPERPLASIA
     Dates: start: 2010
  19. MIRALAX [Concomitant]
     Indication: CONSTIPATION
     Dates: start: 20120113

REACTIONS (4)
  - Dehydration [Recovered/Resolved]
  - Confusional state [Not Recovered/Not Resolved]
  - Senile dementia [Not Recovered/Not Resolved]
  - Metastases to spine [Recovering/Resolving]
